FAERS Safety Report 9697878 (Version 2)
Quarter: 2013Q4

REPORT INFORMATION
  Report Type: Other
  Country: IT (occurrence: IT)
  Receive Date: 20131120
  Receipt Date: 20131120
  Transmission Date: 20140711
  Serious: Yes (Hospitalization)
  Sender: FDA-Public Use
  Company Number: IT-TAKEDA-TIF2013A00121

PATIENT
  Sex: 0

DRUGS (7)
  1. ACTOS [Suspect]
     Indication: TYPE 2 DIABETES MELLITUS
     Dosage: 45 MG, DAILY
     Route: 048
     Dates: start: 20120801, end: 20130711
  2. COUMADIN [Concomitant]
     Dosage: UNK
  3. LASIX [Concomitant]
     Dosage: 25 MG, UNK
     Route: 048
  4. LUCEN [Concomitant]
     Dosage: 40 MG, UNK
  5. ALDACTONE [Concomitant]
     Dosage: 100 MG, UNK
  6. ISOPTIN [Concomitant]
     Dosage: 3 MG, DF
  7. ADENURIC [Concomitant]
     Dosage: 120 MG, UNK

REACTIONS (1)
  - Normochromic normocytic anaemia [Unknown]
